FAERS Safety Report 7757636-X (Version None)
Quarter: 2011Q3

REPORT INFORMATION
  Report Type: 
  Country: None (occurrence: None)
  Receive Date: 20110916
  Receipt Date: 20110902
  Transmission Date: 20111222
  Serious: Yes (Other)
  Sender: FDA-Public Use
  Company Number: PHHY2011BR78827

PATIENT
  Sex: Female

DRUGS (1)
  1. EXFORGE [Suspect]
     Dosage: 1 DF( 160/5 MG), UNK

REACTIONS (1)
  - PERIPHERAL ISCHAEMIA [None]
